FAERS Safety Report 7358347-5 (Version None)
Quarter: 2011Q1

REPORT INFORMATION
  Report Type: 
  Country: None (occurrence: None)
  Receive Date: 20110317
  Receipt Date: 20110314
  Transmission Date: 20110831
  Serious: Yes (Death)
  Sender: FDA-Public Use
  Company Number: PHHY2011AU06128

PATIENT
  Sex: Female
  Weight: 70 kg

DRUGS (2)
  1. AFINITOR [Suspect]
     Indication: METASTATIC RENAL CELL CARCINOMA
     Dosage: UNK
     Route: 048
  2. MORPHINE [Concomitant]
     Indication: PAIN
     Dosage: UNK
     Dates: start: 20110120

REACTIONS (1)
  - NEOPLASM MALIGNANT [None]
